FAERS Safety Report 13881730 (Version 1)
Quarter: 2017Q3

REPORT INFORMATION
  Report Type: Spontaneous
  Country: US (occurrence: US)
  Receive Date: 20170818
  Receipt Date: 20170818
  Transmission Date: 20171127
  Serious: Yes (Other)
  Sender: FDA-Public Use
  Company Number: US-AMGEN-USASP2017122992

PATIENT
  Age: 60 Year
  Sex: Female
  Weight: 92.5 kg

DRUGS (22)
  1. REMICADE [Suspect]
     Active Substance: INFLIXIMAB
     Indication: PRODUCT USED FOR UNKNOWN INDICATION
     Dosage: UNK
     Route: 065
  2. OTEZLA [Concomitant]
     Active Substance: APREMILAST
     Dosage: 30 MG, UNK
  3. SECUKINUMAB [Suspect]
     Active Substance: SECUKINUMAB
     Indication: PRODUCT USED FOR UNKNOWN INDICATION
     Dosage: UNK
     Route: 065
  4. MORPHINE [Concomitant]
     Active Substance: MORPHINE
     Dosage: 15 MG, BID
     Route: 048
  5. HUMIRA [Concomitant]
     Active Substance: ADALIMUMAB
     Dosage: UNK
     Dates: start: 2012
  6. CYMBALTA [Suspect]
     Active Substance: DULOXETINE HYDROCHLORIDE
     Indication: PRODUCT USED FOR UNKNOWN INDICATION
     Dosage: 20 MG, BID
     Route: 048
  7. LIDODERM [Concomitant]
     Active Substance: LIDOCAINE
     Dosage: UNK, (700MG/PATCH), (ONE PATCH FOR UP TO 12 HOURS)
     Route: 061
  8. CLOBETASOL [Concomitant]
     Active Substance: CLOBETASOL
     Dosage: UNK UNK, BID
  9. ENBREL [Suspect]
     Active Substance: ETANERCEPT
     Indication: PSORIATIC ARTHROPATHY
     Dosage: 50 MG, QWK
     Route: 065
     Dates: start: 200612, end: 2012
  10. CIMZIA [Suspect]
     Active Substance: CERTOLIZUMAB PEGOL
     Indication: PRODUCT USED FOR UNKNOWN INDICATION
     Dosage: UNK
     Route: 065
  11. HYDROCORTISONE. [Concomitant]
     Active Substance: HYDROCORTISONE
     Dosage: UNK UNK, BID
  12. ALLOPURINOL. [Concomitant]
     Active Substance: ALLOPURINOL
     Indication: BLOOD URIC ACID INCREASED
     Dosage: 100 MG, BID
  13. HALOBETASOL PROPIONATE. [Concomitant]
     Active Substance: HALOBETASOL PROPIONATE
     Dosage: UNK UNK, BID
  14. FLAXSEED [Concomitant]
     Active Substance: FLAX SEED
     Dosage: 3 DF, QD
  15. OTEZLA [Concomitant]
     Active Substance: APREMILAST
     Dosage: 10 MG, UNK
  16. ENBREL [Suspect]
     Active Substance: ETANERCEPT
     Indication: ARTHRITIS
     Dosage: UNK
     Route: 065
     Dates: start: 2016
  17. MTX [Suspect]
     Active Substance: METHOTREXATE SODIUM
     Indication: PRODUCT USED FOR UNKNOWN INDICATION
     Dosage: UNK
     Route: 065
  18. COENZYME Q10 [Concomitant]
     Active Substance: UBIDECARENONE
     Dosage: 200 MG, BID
     Route: 048
  19. SIMPONI [Suspect]
     Active Substance: GOLIMUMAB
     Indication: PRODUCT USED FOR UNKNOWN INDICATION
     Dosage: UNK
     Route: 065
  20. TIZANIDINE. [Concomitant]
     Active Substance: TIZANIDINE
     Indication: SLEEP DISORDER
     Dosage: 4 MG, 1-2 AT NIGHT
     Route: 048
  21. OTEZLA [Concomitant]
     Active Substance: APREMILAST
     Dosage: 20 MG, UNK
  22. FOLIC ACID. [Concomitant]
     Active Substance: FOLIC ACID
     Dosage: UNK
     Route: 048

REACTIONS (29)
  - Insomnia [Unknown]
  - Hyperhidrosis [Unknown]
  - Liver function test abnormal [Unknown]
  - Benign neoplasm of cervix uteri [Unknown]
  - Psoriatic arthropathy [Not Recovered/Not Resolved]
  - Hypercholesterolaemia [Unknown]
  - Hepatic steatosis [Unknown]
  - Drug ineffective [Unknown]
  - Lumbar spinal stenosis [Unknown]
  - Alanine aminotransferase increased [Unknown]
  - Shoulder operation [Unknown]
  - Immunodeficiency [Unknown]
  - Gout [Unknown]
  - Obesity [Unknown]
  - Anxiety [Unknown]
  - Nephrolithiasis [Unknown]
  - Abdominal discomfort [Unknown]
  - Dysphagia [Unknown]
  - Depressed mood [Unknown]
  - Red blood cell sedimentation rate increased [Unknown]
  - Chest pain [Unknown]
  - Urosepsis [Unknown]
  - Blood alkaline phosphatase increased [Unknown]
  - Constipation [Unknown]
  - Pustular psoriasis [Unknown]
  - Arthritis bacterial [Unknown]
  - Sciatica [Recovering/Resolving]
  - Pituitary tumour benign [Unknown]
  - Off label use [Unknown]

NARRATIVE: CASE EVENT DATE: 2012
